FAERS Safety Report 7173996-5 (Version None)
Quarter: 2010Q4

REPORT INFORMATION
  Report Type: 
  Country: None (occurrence: None)
  Receive Date: 20101219
  Receipt Date: 20100315
  Transmission Date: 20110411
  Serious: Yes (Other)
  Sender: FDA-Public Use
  Company Number: US-AMGEN-QUU397697

PATIENT

DRUGS (10)
  1. ENBREL [Suspect]
     Indication: RHEUMATOID ARTHRITIS
     Dosage: 50 MG, QWK
     Route: 058
     Dates: start: 20070706, end: 20100105
  2. METHOTREXATE [Concomitant]
     Dosage: 2.5 MG, 4 TIMES/WK
     Dates: start: 20060601, end: 20100115
  3. HYDROXYCHLOROQUINE SULFATE [Concomitant]
  4. CALCIUM [Concomitant]
     Dosage: 1500 MG, QD
     Route: 048
  5. ERGOCALCIFEROL [Concomitant]
     Dosage: 800 IU, QD
     Route: 048
  6. INFLUENZA VACCINE [Concomitant]
  7. MULTI-VITAMINS [Concomitant]
  8. FOLIC ACID [Concomitant]
  9. FISH OIL [Concomitant]
  10. ACETYLSALICYLIC ACID [Concomitant]

REACTIONS (12)
  - ARTHROPATHY [None]
  - BRADYCARDIA [None]
  - BUNION [None]
  - FOOT DEFORMITY [None]
  - LUPUS-LIKE SYNDROME [None]
  - MOTOR DYSFUNCTION [None]
  - NODAL OSTEOARTHRITIS [None]
  - NON-HODGKIN'S LYMPHOMA [None]
  - POST PROCEDURAL COMPLICATION [None]
  - RASH [None]
  - RHEUMATOID ARTHRITIS [None]
  - SKIN PLAQUE [None]
